FAERS Safety Report 21966961 (Version 1)
Quarter: 2023Q1

REPORT INFORMATION
  Report Type: Spontaneous
  Country: CH (occurrence: CH)
  Receive Date: 20230208
  Receipt Date: 20230208
  Transmission Date: 20230418
  Serious: Yes (Other)
  Sender: FDA-Public Use
  Company Number: CH-GLAXOSMITHKLINE-CHCH2023GSK005651

PATIENT

DRUGS (3)
  1. IBUPROFEN [Suspect]
     Active Substance: IBUPROFEN
     Indication: Arthritis
     Dosage: UNK
  2. ADALIMUMAB [Suspect]
     Active Substance: ADALIMUMAB
     Indication: Arthritis
     Dosage: UNK
  3. METHOTREXATE [Concomitant]
     Active Substance: METHOTREXATE
     Indication: Arthritis
     Dosage: UNK

REACTIONS (6)
  - Renal failure [Recovered/Resolved]
  - Crystal nephropathy [Recovered/Resolved]
  - Bone marrow infiltration [Recovered/Resolved]
  - Acute kidney injury [Recovered/Resolved]
  - Vasculitis [Recovered/Resolved]
  - Proteinuria [Recovered/Resolved]
